FAERS Safety Report 10176448 (Version 2)
Quarter: 2014Q2

REPORT INFORMATION
  Report Type: Spontaneous
  Country: FR (occurrence: FR)
  Receive Date: 20140516
  Receipt Date: 20140602
  Transmission Date: 20141212
  Serious: Yes (Hospitalization)
  Sender: FDA-Public Use
  Company Number: FR-GE HEALTHCARE MEDICAL DIAGNOSTICS-OMPQ-PR-1405S-0452

PATIENT
  Age: 87 Year
  Sex: Female

DRUGS (3)
  1. OMNIPAQUE [Suspect]
     Indication: DIARRHOEA
     Route: 042
     Dates: start: 20140319, end: 20140319
  2. OMNIPAQUE [Suspect]
     Indication: DIAGNOSTIC PROCEDURE
  3. DIFICLIR [Suspect]
     Route: 048
     Dates: start: 20140321, end: 20140330

REACTIONS (1)
  - Blood creatinine increased [Recovered/Resolved]
